FAERS Safety Report 17449535 (Version 8)
Quarter: 2021Q3

REPORT INFORMATION
  Report Type: Report from Study
  Country: US (occurrence: US)
  Receive Date: 20200224
  Receipt Date: 20210920
  Transmission Date: 20211014
  Serious: Yes (Hospitalization, Other)
  Sender: FDA-Public Use
  Company Number: NVSC2020US049264

PATIENT
  Sex: Female

DRUGS (1)
  1. GLEEVEC [Suspect]
     Active Substance: IMATINIB MESYLATE
     Indication: PRODUCT USED FOR UNKNOWN INDICATION
     Dosage: UNK
     Route: 065

REACTIONS (11)
  - Product packaging difficult to open [Unknown]
  - Pulmonary oedema [Unknown]
  - Arthritis [Unknown]
  - Pericardial effusion [Unknown]
  - Chronic leukaemia [Unknown]
  - Neoplasm malignant [Unknown]
  - Productive cough [Unknown]
  - Cytogenetic analysis abnormal [Recovered/Resolved]
  - Product dose omission issue [Unknown]
  - Feeling abnormal [Unknown]
  - Lung disorder [Unknown]
